FAERS Safety Report 8907005 (Version 1)
Quarter: 2012Q4

REPORT INFORMATION
  Report Type: Report from Study
  Country: JP (occurrence: JP)
  Receive Date: 20121114
  Receipt Date: 20121114
  Transmission Date: 20130627
  Serious: Yes (Other)
  Sender: FDA-Public Use
  Company Number: JP-VERTEX PHARMACEUTICAL INC.-AE-2012-006228

PATIENT
  Age: 64 Year
  Sex: Male

DRUGS (8)
  1. VX-950 (TELAPREVIR) [Suspect]
     Indication: CHRONIC HEPATITIS C
     Dosage: 1500 mg, qd
     Route: 048
     Dates: start: 20120123, end: 20120416
  2. RIBAVIRIN [Suspect]
     Indication: CHRONIC HEPATITIS C
     Dosage: 400 mg, qd
     Route: 048
     Dates: start: 20120123, end: 20120325
  3. RIBAVIRIN [Suspect]
     Dosage: 200 mg, qd
     Route: 048
     Dates: start: 20120326
  4. PEGINTERFERON ALFA-2B [Suspect]
     Indication: CHRONIC HEPATITIS C
     Dosage: 1.5 ?g/kg, qw
     Route: 058
     Dates: start: 20120123
  5. URSO                               /00465701/ [Concomitant]
     Dosage: 600 mg, qd
     Route: 048
  6. GLIMICRON [Concomitant]
     Dosage: 80 mg, qd
     Route: 048
  7. JANUVIA [Concomitant]
     Dosage: 50 mg, qd
     Route: 048
  8. DIBETOS [Concomitant]
     Dosage: 150 mg, qd
     Route: 048

REACTIONS (1)
  - Retinopathy [Not Recovered/Not Resolved]
